FAERS Safety Report 7395216-9 (Version None)
Quarter: 2011Q2

REPORT INFORMATION
  Report Type: 
  Country: None (occurrence: None)
  Receive Date: 20110405
  Receipt Date: 20081204
  Transmission Date: 20111010
  Serious: Yes (Hospitalization, Other)
  Sender: FDA-Public Use
  Company Number: US-BAYER-2011-006397

PATIENT
  Sex: Male
  Weight: 78 kg

DRUGS (16)
  1. TRASYLOL,TRASYLOL [Suspect]
     Dosage: 200 ML, LOADING DOSE
     Dates: start: 20051205, end: 20051205
  2. PLAVIX [Concomitant]
     Dosage: 75 MG, QD
     Route: 048
  3. AMIODARONE HCL [Concomitant]
     Dosage: 600 MG, TID
     Route: 048
  4. MUCOMYST [Concomitant]
     Dosage: 600 MG, BID
  5. LIPITOR [Concomitant]
     Dosage: 10 MG, QD
     Dates: start: 20050101
  6. LOPRESSOR [Concomitant]
     Dosage: 12.5 MG, QD
     Route: 048
  7. TRASYLOL,TRASYLOL [Suspect]
     Dosage: 50 ML, Q1HR
     Dates: start: 20051205, end: 20051205
  8. ACETYLSALICYLIC ACID SRT [Concomitant]
     Dosage: 81 MG, QD
  9. PROTAMINE SULFATE [Concomitant]
     Dosage: UNK
     Dates: start: 20051205
  10. ZOSYN [Concomitant]
     Dosage: 2.25 MG, QD
  11. VERSED [Concomitant]
     Dosage: UNK
     Dates: start: 20051205
  12. DOPAMINE [Concomitant]
     Dosage: UNK
     Dates: start: 20051205
  13. INSULIN [Concomitant]
     Dosage: PER PROTOCOL
  14. FENTANYL [Concomitant]
     Dosage: UNK
     Dates: start: 20051205
  15. PROPOFOL [Concomitant]
     Dosage: 10 ML/HR
     Dates: start: 20051205
  16. TRASYLOL,TRASYLOL [Suspect]
     Indication: CORONARY ARTERY BYPASS
     Dosage: 1 ML, INITIAL DOSE
     Route: 042
     Dates: start: 20051205

REACTIONS (12)
  - RENAL IMPAIRMENT [None]
  - RENAL INJURY [None]
  - MULTI-ORGAN FAILURE [None]
  - RENAL FAILURE [None]
  - ANXIETY [None]
  - UNEVALUABLE EVENT [None]
  - EMOTIONAL DISTRESS [None]
  - CEREBROVASCULAR ACCIDENT [None]
  - FEAR [None]
  - STRESS [None]
  - PAIN [None]
  - INJURY [None]
